FAERS Safety Report 18027937 (Version 4)
Quarter: 2021Q2

REPORT INFORMATION
  Report Type: Spontaneous
  Country: CH (occurrence: CH)
  Receive Date: 20200716
  Receipt Date: 20210628
  Transmission Date: 20210717
  Serious: Yes (Other)
  Sender: FDA-Public Use
  Company Number: CH-TEVA-2020-CH-1801738

PATIENT
  Sex: Male

DRUGS (6)
  1. PEMZEK PLUS [Concomitant]
     Active Substance: CANDESARTAN CILEXETIL\HYDROCHLOROTHIAZIDE
     Indication: HYPERTENSION
     Dosage: 32 MG CANDESARTAN/12.5 MG HYDROCHLOROTHIAZIDE
  2. SERETIDE [Concomitant]
     Active Substance: FLUTICASONE PROPIONATE\SALMETEROL XINAFOATE
     Indication: HYPERSENSITIVITY
     Dosage: 50 MICROGRAMS SALMETEROL/250 MICROGRAMS FLUTICASON?PROPIONAT AEROSOL
  3. AMASYS NASAL SPRAY 27.5 MCG [Concomitant]
     Indication: HYPERSENSITIVITY
  4. TRAMADOL?MEPHA [Suspect]
     Active Substance: TRAMADOL
     Indication: MIGRAINE
     Dosage: 100MG/2ML
     Route: 065
  5. PANTOPRAZOL 20 MG [Concomitant]
     Active Substance: PANTOPRAZOLE SODIUM
     Indication: PROPHYLAXIS
  6. XYZAL [Concomitant]
     Active Substance: LEVOCETIRIZINE DIHYDROCHLORIDE
     Indication: HYPERSENSITIVITY

REACTIONS (1)
  - Drug dependence [Not Recovered/Not Resolved]
